FAERS Safety Report 11391797 (Version 3)
Quarter: 2015Q4

REPORT INFORMATION
  Report Type: Spontaneous
  Country: US (occurrence: US)
  Receive Date: 20150818
  Receipt Date: 20151116
  Transmission Date: 20160304
  Serious: No
  Sender: FDA-Public Use
  Company Number: US-PFIZER INC-2015271233

PATIENT
  Age: 14 Year
  Sex: Male
  Weight: 36 kg

DRUGS (4)
  1. GENOTROPIN [Suspect]
     Active Substance: SOMATROPIN
     Indication: RENAL OSTEODYSTROPHY
     Dosage: 1.6 MG, DAILY (AT BED TIME)
     Route: 058
     Dates: end: 20150806
  2. IRON [Concomitant]
     Active Substance: IRON
     Dosage: 18 MG, UNK
  3. GENOTROPIN [Suspect]
     Active Substance: SOMATROPIN
     Indication: BODY HEIGHT BELOW NORMAL
  4. GENOTROPIN [Suspect]
     Active Substance: SOMATROPIN
     Indication: CHRONIC KIDNEY DISEASE
     Dosage: 1.6 MG, DAILY (AT BED TIME)
     Route: 058
     Dates: start: 20150513

REACTIONS (3)
  - Diarrhoea [Not Recovered/Not Resolved]
  - Influenza [Recovered/Resolved]
  - Decreased appetite [Recovered/Resolved]

NARRATIVE: CASE EVENT DATE: 2015
